FAERS Safety Report 4582712-2 (Version None)
Quarter: 2005Q1

REPORT INFORMATION
  Report Type: 
  Country: None (occurrence: None)
  Receive Date: 20050125
  Receipt Date: 20040713
  Transmission Date: 20050727
  Serious: Yes (Hospitalization)
  Sender: FDA-Public Use
  Company Number: US013088

PATIENT
  Age: 56 Year
  Sex: Male

DRUGS (1)
  1. ACTIQ [Suspect]
     Dosage: 1600 UG Q4HR BUCCAL
     Route: 002

REACTIONS (1)
  - CONVULSION [None]
